FAERS Safety Report 20437251 (Version 1)
Quarter: 2022Q1

REPORT INFORMATION
  Report Type: Spontaneous
  Country: US (occurrence: US)
  Receive Date: 20220207
  Receipt Date: 20220207
  Transmission Date: 20220423
  Serious: Yes (Other)
  Sender: FDA-Public Use
  Company Number: US-JNJFOC-20220160916

PATIENT
  Sex: Male

DRUGS (3)
  1. DIPHENHYDRAMINE HYDROCHLORIDE [Suspect]
     Active Substance: DIPHENHYDRAMINE HYDROCHLORIDE
     Indication: Allergy to arthropod bite
     Dosage: APPLIED ONCE ON NECK, AND ON LARGE AREA AT BACK OF NECK
     Route: 061
     Dates: start: 20220126
  2. DIPHENHYDRAMINE HYDROCHLORIDE [Suspect]
     Active Substance: DIPHENHYDRAMINE HYDROCHLORIDE
     Indication: Pruritus
  3. WARFARIN [Concomitant]
     Active Substance: WARFARIN
     Indication: Coagulopathy
     Route: 065

REACTIONS (3)
  - Hypotension [Unknown]
  - Dizziness [Unknown]
  - Product administered at inappropriate site [Unknown]

NARRATIVE: CASE EVENT DATE: 20220126
